FAERS Safety Report 9326055 (Version 1)
Quarter: 2013Q2

REPORT INFORMATION
  Report Type: Spontaneous
  Country: GR (occurrence: GR)
  Receive Date: 20130604
  Receipt Date: 20130604
  Transmission Date: 20140414
  Serious: Yes (Hospitalization, Other)
  Sender: FDA-Public Use
  Company Number: GR-ROXANE LABORATORIES, INC.-2013-RO-00861RO

PATIENT
  Age: 56 Year
  Sex: Female

DRUGS (10)
  1. METHOTREXATE [Suspect]
     Indication: SYSTEMIC LUPUS ERYTHEMATOSUS
  2. CARBAMAZEPINE [Suspect]
  3. METHYLPREDNISOLONE [Concomitant]
  4. LEVOTHYROXINE [Concomitant]
  5. ACENOCOUMAROL [Concomitant]
  6. FOLIC ACID [Concomitant]
  7. FERROUS SULFATE [Concomitant]
  8. ACETYLSALICYLIC ACID [Concomitant]
  9. PANTOPRAZOLE [Concomitant]
  10. ALFACALCIDOL [Concomitant]

REACTIONS (3)
  - Subacute endocarditis [Recovered/Resolved]
  - Bacterial infection [Recovered/Resolved]
  - Bone marrow toxicity [Unknown]
